FAERS Safety Report 5413800-6 (Version None)
Quarter: 2007Q3

REPORT INFORMATION
  Report Type: 
  Country: None (occurrence: None)
  Receive Date: 20070814
  Receipt Date: 20070806
  Transmission Date: 20080115
  Serious: Yes (Disabling)
  Sender: FDA-Public Use
  Company Number: BR-AVENTIS-200716806GDDC

PATIENT
  Sex: Male
  Weight: 62 kg

DRUGS (10)
  1. LANTUS [Suspect]
     Route: 058
     Dates: start: 20050101
  2. LANTUS [Suspect]
     Route: 058
  3. NOVOLIN                            /00030501/ [Concomitant]
     Route: 058
  4. LIMBITROL                          /00164901/ [Concomitant]
     Indication: DEPRESSION
     Dosage: DOSE QUANTITY: 2
     Dates: start: 20061101
  5. PROLOPA [Concomitant]
     Indication: PARKINSON'S DISEASE
     Dosage: DOSE QUANTITY: 3
     Dates: start: 20050101
  6. PROLOPA HBS [Concomitant]
     Indication: PARKINSON'S DISEASE
     Dosage: DOSE QUANTITY: 1
     Dates: start: 20050101
  7. DIOVAN [Concomitant]
     Indication: BLOOD PRESSURE
     Dosage: DOSE QUANTITY: 1
     Dates: start: 20040101
  8. TENSALIV [Concomitant]
     Indication: BLOOD PRESSURE
     Dosage: DOSE QUANTITY: 1
     Dates: start: 20040101
  9. PLAVIX [Concomitant]
     Indication: CEREBROVASCULAR ACCIDENT PROPHYLAXIS
     Dosage: DOSE QUANTITY: 1
     Dates: start: 20040101
  10. FRESH TEARS [Concomitant]
     Route: 031

REACTIONS (8)
  - ABNORMAL BEHAVIOUR [None]
  - AGITATION [None]
  - DIZZINESS [None]
  - EMOTIONAL DISTRESS [None]
  - HYPERGLYCAEMIA [None]
  - HYPOGLYCAEMIA [None]
  - VISUAL ACUITY REDUCED [None]
  - VISUAL DISTURBANCE [None]
